FAERS Safety Report 7268096-X (Version None)
Quarter: 2011Q1

REPORT INFORMATION
  Report Type: 
  Country: None (occurrence: None)
  Receive Date: 20110201
  Receipt Date: 20110127
  Transmission Date: 20110831
  Serious: Yes (Hospitalization, Other)
  Sender: FDA-Public Use
  Company Number: US-PFIZER INC-2011020025

PATIENT
  Sex: Male
  Weight: 91.6 kg

DRUGS (7)
  1. SUTENT [Suspect]
     Indication: RENAL CANCER
     Dosage: 50 MG, 1X/DAY
     Route: 048
     Dates: start: 20101201
  2. ZOFRAN [Concomitant]
     Dosage: EVERY 8 HOURS
  3. WARFARIN SODIUM [Concomitant]
     Dosage: 5 MG, 1X/DAY
  4. ZOCOR [Concomitant]
     Dosage: 80 MG, 1X/DAY
     Route: 048
  5. PLAVIX [Concomitant]
     Dosage: 75 MG, 1X/DAY
     Route: 048
  6. COMPAZINE [Concomitant]
     Dosage: EVERY 6 HOURS
     Route: 048
  7. LOPRESSOR [Concomitant]
     Dosage: 25 MG, 1X/DAY
     Route: 048

REACTIONS (2)
  - RENAL FAILURE [None]
  - BLOOD CREATININE INCREASED [None]
